FAERS Safety Report 4477742-5 (Version None)
Quarter: 2004Q3

REPORT INFORMATION
  Report Type: 
  Country: None (occurrence: None)
  Receive Date: 20040923
  Receipt Date: 20040804
  Transmission Date: 20050211
  Serious: No
  Sender: FDA-Public Use
  Company Number: USA040874567

PATIENT
  Age: 50 Year
  Sex: Female

DRUGS (2)
  1. FORTEO [Suspect]
     Indication: OSTEOPOROSIS
     Dates: start: 20040729
  2. CALCIUM [Concomitant]

REACTIONS (8)
  - ABNORMAL FAECES [None]
  - CONSTIPATION [None]
  - DYSPEPSIA [None]
  - EMOTIONAL DISORDER [None]
  - FEELING ABNORMAL [None]
  - FOOD CRAVING [None]
  - NAUSEA [None]
  - VOMITING [None]
